FAERS Safety Report 9466887 (Version 1)
Quarter: 2013Q3

REPORT INFORMATION
  Report Type: Spontaneous
  Country: TH (occurrence: TH)
  Receive Date: 20130820
  Receipt Date: 20130820
  Transmission Date: 20140515
  Serious: Yes (Other)
  Sender: FDA-Public Use
  Company Number: TH-ASTRAZENECA-2013SE62745

PATIENT
  Age: 72 Year
  Sex: Female

DRUGS (4)
  1. LIDOCAINE [Suspect]
     Indication: VENTRICULAR ARRHYTHMIA
     Dosage: MULTIPLE DOSES
     Route: 042
  2. LIDOCAINE [Suspect]
     Indication: VENTRICULAR ARRHYTHMIA
  3. BUPIVACAINE [Suspect]
     Indication: VENTRICULAR ARRHYTHMIA
  4. CORDARONE [Concomitant]
     Indication: VENTRICULAR ARRHYTHMIA

REACTIONS (2)
  - Partial seizures [Unknown]
  - Off label use [Unknown]
